FAERS Safety Report 14320246 (Version 1)
Quarter: 2017Q4

REPORT INFORMATION
  Report Type: Spontaneous
  Country: US (occurrence: US)
  Receive Date: 20171222
  Receipt Date: 20171222
  Transmission Date: 20180321
  Serious: Yes (Other)
  Sender: FDA-Public Use
  Company Number: None

PATIENT
  Age: 74 Year
  Sex: Female
  Weight: 60.33 kg

DRUGS (11)
  1. MAGNESIUM [Concomitant]
     Active Substance: MAGNESIUM
  2. VITAMIN D3 [Concomitant]
     Active Substance: CHOLECALCIFEROL
  3. DIPHENOXYLATE/ATROPINE TABLETS [Suspect]
     Active Substance: ATROPINE SULFATE\DIPHENOXYLATE
     Indication: DIARRHOEA
     Dosage: 1/2011 OR 2012 - 08/01/2016
     Route: 048
     Dates: start: 201101, end: 20160801
  4. METOPROLOL TARTRATE. [Concomitant]
     Active Substance: METOPROLOL TARTRATE
  5. HCTZ/SPIRONLACTATE [Concomitant]
  6. VITAMIN B12 [Concomitant]
     Active Substance: CYANOCOBALAMIN
  7. GARLIC. [Concomitant]
     Active Substance: GARLIC
  8. VITAMIN A [Concomitant]
     Active Substance: VITAMIN A
  9. MULTIVITAMIN CENTRAL VIT FOR SENIORS [Concomitant]
  10. VITAMIN C [Concomitant]
     Active Substance: ASCORBIC ACID
  11. DIPHENOXYLATE/ATROPINE TABLETS [Suspect]
     Active Substance: ATROPINE SULFATE\DIPHENOXYLATE
     Indication: COLITIS
     Dosage: 1/2011 OR 2012 - 08/01/2016
     Route: 048
     Dates: start: 201101, end: 20160801

REACTIONS (2)
  - Neck pain [None]
  - Headache [None]

NARRATIVE: CASE EVENT DATE: 20161014
